FAERS Safety Report 23579429 (Version 2)
Quarter: 2024Q1

REPORT INFORMATION
  Report Type: Spontaneous
  Country: US (occurrence: US)
  Receive Date: 20240229
  Receipt Date: 20240319
  Transmission Date: 20240410
  Serious: No
  Sender: FDA-Public Use
  Company Number: US-TEVA-VS-3163225

PATIENT
  Age: 41 Year
  Sex: Female

DRUGS (1)
  1. ALPRAZOLAM [Suspect]
     Active Substance: ALPRAZOLAM
     Indication: Anxiety
     Dosage: LAST REFILL ON FEBRUARY 08, 2024.  DISPENSED 24 TABLETS A MONTH
     Route: 065
     Dates: start: 2023

REACTIONS (10)
  - Stress [Unknown]
  - Tooth injury [Unknown]
  - Wrong technique in product usage process [Unknown]
  - Product taste abnormal [Unknown]
  - Malaise [Not Recovered/Not Resolved]
  - Drug ineffective [Recovering/Resolving]
  - Headache [Unknown]
  - Abdominal pain upper [Unknown]
  - Adverse event [Unknown]
  - Withdrawal syndrome [Unknown]

NARRATIVE: CASE EVENT DATE: 20240208
